FAERS Safety Report 4588021-X (Version None)
Quarter: 2005Q1

REPORT INFORMATION
  Report Type: 
  Country: None (occurrence: None)
  Receive Date: 20050217
  Receipt Date: 19190215
  Transmission Date: 20050727
  Serious: Yes (Death)
  Sender: FDA-Public Use
  Company Number: 05-02-0211

PATIENT
  Age: 85 Year
  Sex: Female

DRUGS (1)
  1. CLOZAPINE [Suspect]
     Indication: PSYCHOTIC DISORDER
     Dosage: 100-200 MG QD ORAL
     Route: 048
     Dates: start: 20021001, end: 20050101

REACTIONS (1)
  - PNEUMONIA [None]
